FAERS Safety Report 7753643-1 (Version None)
Quarter: 2011Q3

REPORT INFORMATION
  Report Type: 
  Country: None (occurrence: None)
  Receive Date: 20110915
  Receipt Date: 20110913
  Transmission Date: 20111222
  Serious: Yes (Hospitalization)
  Sender: FDA-Public Use
  Company Number: US-GLAXOSMITHKLINE-B0747309A

PATIENT
  Age: 69 Year
  Sex: Male

DRUGS (1)
  1. AVANDIA [Suspect]
     Indication: DIABETES MELLITUS
     Dosage: 2MG PER DAY
     Route: 048
     Dates: start: 20061221, end: 20100118

REACTIONS (4)
  - CHEST PAIN [None]
  - HYPOAESTHESIA [None]
  - PAIN IN EXTREMITY [None]
  - MYOCARDIAL INFARCTION [None]
